FAERS Safety Report 9568126 (Version 1)
Quarter: 2013Q3

REPORT INFORMATION
  Report Type: Spontaneous
  Country: US (occurrence: US)
  Receive Date: 20130930
  Receipt Date: 20130930
  Transmission Date: 20140515
  Serious: No
  Sender: FDA-Public Use
  Company Number: US-AMGEN-USASP2013057229

PATIENT
  Age: 79 Year
  Sex: Female
  Weight: 58.96 kg

DRUGS (9)
  1. ENBREL [Suspect]
     Indication: PRODUCT USED FOR UNKNOWN INDICATION
     Dosage: 50 MG, QWK
     Route: 058
  2. PREDNISOLON                        /00016201/ [Concomitant]
     Dosage: 5 MG, UNK
  3. LIPITOR [Concomitant]
     Dosage: 10 MG, UNK
  4. PAXIL                              /00500401/ [Concomitant]
     Dosage: 20 MG, UNK
  5. COUMADIN                           /00014802/ [Concomitant]
     Dosage: 3 MG, UNK
  6. ZEBETA [Concomitant]
     Dosage: 5 MG, UNK
  7. CENTRUM                            /02217401/ [Concomitant]
  8. VITAMIN D                          /00107901/ [Concomitant]
     Dosage: 1000 IU, UNK
  9. CALCIUM [Concomitant]
     Dosage: 500 UNK, UNK

REACTIONS (1)
  - Herpes zoster [Unknown]
